FAERS Safety Report 23781738 (Version 4)
Quarter: 2024Q2

REPORT INFORMATION
  Report Type: Spontaneous
  Country: BE (occurrence: BE)
  Receive Date: 20240425
  Receipt Date: 20240515
  Transmission Date: 20240716
  Serious: Yes (Hospitalization, Other)
  Sender: FDA-Public Use
  Company Number: BE-CELLTRION INC.-2024BE009203

PATIENT

DRUGS (43)
  1. RITUXIMAB [Suspect]
     Active Substance: RITUXIMAB
     Indication: Product used for unknown indication
     Dosage: 375 MG/M2, REGIMEN1, 1Q3W (CYCLE 1-3)
     Route: 042
     Dates: start: 20210804
  2. CYTARABINE [Suspect]
     Active Substance: CYTARABINE
     Indication: Product used for unknown indication
     Dosage: 2000 MG/M2, REGIMEN1, 1Q3W (CYCLE 1-3)
     Route: 042
     Dates: start: 20210804, end: 20210804
  3. EPCORITAMAB [Suspect]
     Active Substance: EPCORITAMAB
     Indication: Product used for unknown indication
     Dosage: 0.8 MG, REGIMEN1, INTERMEDIATE DOSE
     Route: 058
     Dates: start: 20210811
  4. EPCORITAMAB [Suspect]
     Active Substance: EPCORITAMAB
     Dosage: 0.16 MG, PRIMING DOSE, SINGLE
     Route: 058
     Dates: start: 20210804, end: 20210804
  5. DEXAMETHASONE [Suspect]
     Active Substance: DEXAMETHASONE
     Indication: Product used for unknown indication
     Dosage: 40 MILLIGRAM, QD, REGIMEN 1
     Route: 042
     Dates: start: 20210804, end: 20210807
  6. CARBOPLATIN [Suspect]
     Active Substance: CARBOPLATIN
     Indication: Product used for unknown indication
     Dosage: 375 MG, REGIMEN1, 1Q3W (CYCLE 1-3)
     Route: 042
     Dates: start: 20210804
  7. COLCHICINE [Concomitant]
     Active Substance: COLCHICINE
     Dosage: UNK
     Dates: start: 20210712, end: 20210804
  8. ACETAMINOPHEN [Concomitant]
     Active Substance: ACETAMINOPHEN
     Dosage: UNK
     Dates: start: 20210804, end: 20210804
  9. DEXAMETHASONE [Concomitant]
     Active Substance: DEXAMETHASONE
     Dosage: UNK
     Dates: start: 20210805, end: 20210805
  10. POLYETHYLENE GLYCOL 3350\POTASSIUM CHLORIDE\SODIUM BICARBONATE\SODIUM [Concomitant]
     Active Substance: POLYETHYLENE GLYCOL 3350\POTASSIUM CHLORIDE\SODIUM BICARBONATE\SODIUM CHLORIDE
     Dosage: UNK
     Dates: start: 20210810
  11. LATANOPROST [Concomitant]
     Active Substance: LATANOPROST
     Dosage: UNK
     Dates: start: 20210719, end: 20210916
  12. DAFALGAN [Concomitant]
     Active Substance: ACETAMINOPHEN
     Dosage: UNK
     Dates: start: 20210718, end: 20210804
  13. OMEPRAZOLE [Concomitant]
     Active Substance: DONEPEZIL HYDROCHLORIDE\OMEPRAZOLE\OMEPRAZOLE MAGNESIUM
     Dosage: UNK
     Dates: start: 20210719
  14. AMITRIPTYLINE HYDROCHLORIDE [Concomitant]
     Active Substance: AMITRIPTYLINE HYDROCHLORIDE
     Dosage: UNK
     Dates: start: 20210729, end: 20210927
  15. ALIZAPRIDE HYDROCHLORIDE [Concomitant]
     Active Substance: ALIZAPRIDE HYDROCHLORIDE
     Dosage: UNK
     Dates: start: 20210804, end: 20210804
  16. ESOMEPRAZOLE [Concomitant]
     Active Substance: ESOMEPRAZOLE
     Dosage: UNK
     Dates: start: 20210718
  17. FEBUXOSTAT [Concomitant]
     Active Substance: FEBUXOSTAT
     Dosage: UNK
     Dates: start: 20201004
  18. BUMETANIDE [Concomitant]
     Active Substance: BUMETANIDE
     Dosage: UNK
     Dates: start: 20210806, end: 20210808
  19. FLUCONAZOLE [Concomitant]
     Active Substance: FLUCONAZOLE
     Dosage: UNK
     Dates: start: 20210804
  20. CHOLECALCIFEROL [Concomitant]
     Active Substance: CHOLECALCIFEROL
     Dosage: UNK
     Dates: start: 20210718
  21. BACTRIM [Concomitant]
     Active Substance: SULFAMETHOXAZOLE\TRIMETHOPRIM
     Dosage: UNK
     Dates: start: 20210718
  22. ENOXAPARIN SODIUM [Concomitant]
     Active Substance: ENOXAPARIN SODIUM
     Dosage: UNK
     Dates: start: 20210719, end: 20210729
  23. ACYCLOVIR [Concomitant]
     Active Substance: ACYCLOVIR
     Dosage: UNK
     Dates: start: 20210621
  24. HYALURONATE SODIUM\TREHALOSE [Concomitant]
     Active Substance: HYALURONATE SODIUM\TREHALOSE
     Dosage: UNK
     Dates: start: 20210804
  25. ONDANSETRON [Concomitant]
     Active Substance: ONDANSETRON
     Dosage: UNK
     Dates: start: 20210804
  26. MONOFREE DEXAMETHASON [DEXAMETHASONE] [Concomitant]
     Dosage: UNK
     Dates: start: 20210804
  27. TRAMADOL HYDROCHLORIDE [Concomitant]
     Active Substance: TRAMADOL HYDROCHLORIDE
     Dosage: UNK
     Dates: start: 20210718
  28. DEXERYL [CHLORPHENAMINE MALEATE;DEXTROMETHORPHAN HYDROBROMIDE;GUAIFENE [Concomitant]
     Dosage: UNK
     Dates: start: 20210810, end: 20210813
  29. FASTURTEC [Concomitant]
     Active Substance: RASBURICASE
     Dosage: UNK
     Dates: start: 20210807, end: 20210812
  30. FASTURTEC [Concomitant]
     Active Substance: RASBURICASE
     Dosage: UNK
     Dates: start: 20210804
  31. ZOFRAN [Concomitant]
     Active Substance: ONDANSETRON HYDROCHLORIDE
     Dosage: UNK
     Dates: start: 20210808, end: 20210810
  32. LASIX [Concomitant]
     Active Substance: FUROSEMIDE
     Dosage: UNK
     Dates: start: 20210805, end: 20210811
  33. CLEMASTINE FUMARATE [Concomitant]
     Active Substance: CLEMASTINE FUMARATE
     Dosage: UNK
     Dates: start: 20210804, end: 20210804
  34. FILGRASTIM [Concomitant]
     Active Substance: FILGRASTIM
     Dosage: UNK
     Dates: start: 20210726, end: 20210804
  35. AUGMENTIN [Concomitant]
     Active Substance: AMOXICILLIN\CLAVULANATE POTASSIUM
     Dosage: UNK
     Dates: start: 20210712, end: 20210722
  36. LIPEGFILGRASTIM [Concomitant]
     Active Substance: LIPEGFILGRASTIM
     Dosage: UNK
     Dates: start: 20210805, end: 20210805
  37. IBUPROFEN [Concomitant]
     Active Substance: IBUPROFEN
     Dosage: UNK
     Dates: start: 20210712, end: 20210714
  38. MOXONIDINE [Concomitant]
     Active Substance: MOXONIDINE
     Dosage: UNK
     Dates: start: 20210719, end: 20210827
  39. XALATAN [Concomitant]
     Active Substance: LATANOPROST
     Dosage: UNK
     Dates: start: 20210718
  40. VITAMIN A PALMITATE [Concomitant]
     Active Substance: VITAMIN A PALMITATE
     Dosage: UNK
     Dates: start: 20210805
  41. XANAX [Concomitant]
     Active Substance: ALPRAZOLAM
     Dosage: UNK
     Dates: start: 20210728, end: 20210728
  42. INSULIN HUMAN [Concomitant]
     Active Substance: INSULIN HUMAN
     Dosage: UNK
     Dates: start: 20210805, end: 20210809
  43. LORAZEPAM [Concomitant]
     Active Substance: LORAZEPAM
     Dosage: UNK
     Dates: start: 20210804, end: 20210804

REACTIONS (2)
  - Condition aggravated [Recovered/Resolved]
  - Acute kidney injury [Recovered/Resolved]

NARRATIVE: CASE EVENT DATE: 20210807
